FAERS Safety Report 10573918 (Version 1)
Quarter: 2014Q4

REPORT INFORMATION
  Report Type: Report from Study
  Country: TN (occurrence: TN)
  Receive Date: 20141110
  Receipt Date: 20141110
  Transmission Date: 20150529
  Serious: Yes (Death)
  Sender: FDA-Public Use
  Company Number: TN-SA-2014SA153617

PATIENT
  Age: 67 Year
  Sex: Female

DRUGS (5)
  1. CORVASAL [Concomitant]
     Active Substance: LINSIDOMINE
  2. ASPEGIC [Concomitant]
     Active Substance: ASPIRIN DL-LYSINE
  3. ISOPHANE INSULIN [Concomitant]
     Active Substance: INSULIN NOS
  4. PLAVIX [Suspect]
     Active Substance: CLOPIDOGREL BISULFATE
     Indication: CORONARY ANGIOPLASTY
     Dosage: THERAPY STOP DATE: JUL-2014
     Route: 048
     Dates: start: 20140716
  5. HYPOTEN [Concomitant]

REACTIONS (1)
  - Cardiac arrest [Fatal]
